FAERS Safety Report 19382869 (Version 1)
Quarter: 2021Q2

REPORT INFORMATION
  Report Type: Spontaneous
  Country: US (occurrence: US)
  Receive Date: 20210607
  Receipt Date: 20210607
  Transmission Date: 20210717
  Serious: No
  Sender: FDA-Public Use
  Company Number: US-PERRIGO-21US004047

PATIENT
  Age: 53 Year
  Sex: Female
  Weight: 113.38 kg

DRUGS (7)
  1. ALBUTEROL SULFATE. [Suspect]
     Active Substance: ALBUTEROL SULFATE
     Indication: ASTHMA
     Dosage: 180 MCG, Q 4 TO 6 HRS, PRN
     Route: 055
     Dates: start: 20210120, end: 2021
  2. MOBIC [Concomitant]
     Active Substance: MELOXICAM
     Indication: ARTHRITIS
     Dosage: UNK
     Route: 065
  3. METFORMIN [Concomitant]
     Active Substance: METFORMIN HYDROCHLORIDE
     Indication: DIABETES MELLITUS
     Dosage: UNK
     Route: 065
  4. LISINOPRIL. [Concomitant]
     Active Substance: LISINOPRIL
     Indication: HYPERTENSION
     Dosage: UNK
     Route: 065
  5. CLARITIN [Concomitant]
     Active Substance: LORATADINE
     Indication: PERENNIAL ALLERGY
     Dosage: UNK
     Route: 065
  6. ALBUTEROL SULFATE. [Suspect]
     Active Substance: ALBUTEROL SULFATE
     Dosage: UNKNOWN, Q 4 TO 6 HRS, PRN
     Route: 055
     Dates: start: 2021, end: 20210318
  7. VITAMIN D NOS [Concomitant]
     Active Substance: VITAMIN D NOS
     Indication: SUPPLEMENTATION THERAPY
     Dosage: WEEKLY
     Route: 065

REACTIONS (3)
  - Dysgeusia [Recovered/Resolved]
  - Device delivery system issue [Recovered/Resolved]
  - Underdose [Recovered/Resolved]

NARRATIVE: CASE EVENT DATE: 2021
